FAERS Safety Report 19014212 (Version 5)
Quarter: 2021Q3

REPORT INFORMATION
  Report Type: Spontaneous
  Country: US (occurrence: US)
  Receive Date: 20210316
  Receipt Date: 20210818
  Transmission Date: 20211014
  Serious: Yes (Life-Threatening, Hospitalization)
  Sender: FDA-Public Use
  Company Number: US-ASTRAZENECA-2021A123506

PATIENT
  Age: 35 Year
  Sex: Male
  Weight: 83.9 kg

DRUGS (11)
  1. CHLOROTHALIDONE [Concomitant]
     Dosage: 25.0MG UNKNOWN
     Route: 048
     Dates: start: 20210120
  2. ALBUTEROL. [Concomitant]
     Active Substance: ALBUTEROL
     Indication: PRODUCT USED FOR UNKNOWN INDICATION
     Dosage: 90.0UG EVERY 4 ? 6 HOURS
     Route: 055
     Dates: start: 201910
  3. FASENRA [Suspect]
     Active Substance: BENRALIZUMAB
     Indication: CHRONIC OBSTRUCTIVE PULMONARY DISEASE
     Dosage: 30.0MG UNKNOWN
     Route: 058
     Dates: start: 20210225
  4. IPRATROPIUM ALBUTEROL NEBULIZER [Concomitant]
     Indication: ASTHMA
     Route: 055
  5. SINGULAIR [Concomitant]
     Active Substance: MONTELUKAST SODIUM
     Dosage: 10 MG TABLET AT BEDTIME
  6. FASENRA [Suspect]
     Active Substance: BENRALIZUMAB
     Indication: ASTHMA
     Dosage: 30.0MG UNKNOWN
     Route: 058
     Dates: start: 20210225
  7. SYMBICORT [Suspect]
     Active Substance: BUDESONIDE\FORMOTEROL FUMARATE DIHYDRATE
     Indication: ASTHMA
     Dosage: 80/4.5MCG, 2 PUFFS TWO TIMES A DAY
     Route: 055
     Dates: start: 20200206
  8. SYMBICORT [Suspect]
     Active Substance: BUDESONIDE\FORMOTEROL FUMARATE DIHYDRATE
     Indication: BRONCHITIS
     Dosage: 80/4.5MCG, 2 PUFFS TWO TIMES A DAY
     Route: 055
     Dates: start: 20200206
  9. ALBUTEROL NEBULIZER [Concomitant]
     Active Substance: ALBUTEROL
     Indication: ASTHMA
     Route: 055
     Dates: start: 201906
  10. SPIRIVA [Concomitant]
     Active Substance: TIOTROPIUM BROMIDE MONOHYDRATE
     Indication: ASTHMA
     Route: 055
     Dates: start: 20210126
  11. PREDNISONE. [Concomitant]
     Active Substance: PREDNISONE
     Dosage: 10.0MG UNKNOWN
     Route: 048

REACTIONS (13)
  - Bronchial hyperreactivity [Unknown]
  - Wheezing [Unknown]
  - Drug ineffective [Unknown]
  - Pain [Unknown]
  - Anaphylactic reaction [Unknown]
  - Nausea [Recovered/Resolved]
  - Asthma [Recovered/Resolved]
  - Speech disorder [Recovered/Resolved]
  - Bronchitis [Unknown]
  - Dyspnoea [Not Recovered/Not Resolved]
  - Ill-defined disorder [Unknown]
  - Acute respiratory failure [Recovered/Resolved]
  - Productive cough [Unknown]

NARRATIVE: CASE EVENT DATE: 202002
